FAERS Safety Report 10221311 (Version 1)
Quarter: 2014Q2

REPORT INFORMATION
  Report Type: Spontaneous
  Country: US (occurrence: US)
  Receive Date: 20140606
  Receipt Date: 20140606
  Transmission Date: 20141212
  Serious: No
  Sender: FDA-Public Use
  Company Number: US-GLAXOSMITHKLINE-A1071742A

PATIENT
  Age: 67 Year
  Sex: Female

DRUGS (9)
  1. BREO ELLIPTA [Suspect]
     Indication: CHRONIC OBSTRUCTIVE PULMONARY DISEASE
     Dosage: 1PUFF PER DAY
     Route: 055
     Dates: start: 201404
  2. TUDORZA PRESSAIR [Suspect]
     Dosage: 1PUFF TWICE PER DAY
     Dates: start: 201404
  3. AMITRIPTYLINE [Concomitant]
  4. SINGULAIR [Concomitant]
  5. VERAPAMIL [Concomitant]
  6. LISINOPRIL [Concomitant]
  7. METFORMIN [Concomitant]
  8. XOPENEX [Concomitant]
  9. CRESTOR [Concomitant]

REACTIONS (2)
  - Thrombosis [Unknown]
  - Peripheral swelling [Unknown]
